FAERS Safety Report 8246649-X (Version None)
Quarter: 2012Q1

REPORT INFORMATION
  Report Type: 
  Country: None (occurrence: None)
  Receive Date: 20120330
  Receipt Date: 20120321
  Transmission Date: 20120608
  Serious: Yes (Other)
  Sender: FDA-Public Use
  Company Number: JP-JNJFOC-20120311036

PATIENT
  Sex: Female
  Weight: 37 kg

DRUGS (12)
  1. AMLODIPINE [Concomitant]
     Indication: HYPERTENSION
     Route: 048
  2. LASIX [Concomitant]
     Indication: CARDIAC VALVE DISEASE
     Route: 048
  3. MICARDIS [Concomitant]
     Indication: HYPERTENSION
     Route: 048
  4. GALANTAMINE HYDROBROMIDE [Suspect]
     Route: 048
     Dates: start: 20111219, end: 20120119
  5. ZOLPIDEM [Concomitant]
     Indication: INSOMNIA
     Route: 048
  6. ASTOMIN [Concomitant]
     Indication: BRONCHITIS CHRONIC
     Route: 048
  7. MUCOSOLVAN [Concomitant]
     Indication: BRONCHITIS CHRONIC
     Route: 048
  8. ASPIRIN [Concomitant]
     Indication: CARDIAC VALVE DISEASE
     Route: 048
  9. DIGOXIN [Concomitant]
     Indication: CARDIAC VALVE DISEASE
     Route: 048
  10. GALANTAMINE HYDROBROMIDE [Suspect]
     Indication: DEMENTIA ALZHEIMER'S TYPE
     Route: 048
     Dates: start: 20120120, end: 20120302
  11. MUCODYNE [Concomitant]
     Indication: BRONCHITIS CHRONIC
     Route: 048
  12. FERROUS CITRATE [Concomitant]
     Indication: IRON DEFICIENCY ANAEMIA
     Route: 048

REACTIONS (1)
  - ARRHYTHMIA [None]
